FAERS Safety Report 5729527-7 (Version None)
Quarter: 2008Q2

REPORT INFORMATION
  Report Type: 
  Country: None (occurrence: None)
  Receive Date: 20080501
  Receipt Date: 20080427
  Transmission Date: 20081010
  Serious: Yes (Other)
  Sender: FDA-Public Use
  Company Number: 027040

PATIENT
  Age: 18 Year
  Sex: Female
  Weight: 54.4 kg

DRUGS (1)
  1. PLAN B [Suspect]
     Indication: CONTRACEPTION
     Dosage: 2 TABLET, SINGLE, ORAL
     Route: 048
     Dates: start: 20080414, end: 20080414

REACTIONS (4)
  - DIZZINESS [None]
  - HAEMATEMESIS [None]
  - NAUSEA [None]
  - STOMACH DISCOMFORT [None]
